FAERS Safety Report 24933191 (Version 1)
Quarter: 2025Q1

REPORT INFORMATION
  Report Type: Spontaneous
  Country: US (occurrence: US)
  Receive Date: 20250206
  Receipt Date: 20250206
  Transmission Date: 20250408
  Serious: No
  Sender: ELI LILLY AND COMPANY
  Company Number: US-ELI_LILLY_AND_COMPANY-US202501017356

PATIENT
  Age: 64 Year
  Sex: Male

DRUGS (1)
  1. TIRZEPATIDE [Suspect]
     Active Substance: TIRZEPATIDE
     Indication: Type 2 diabetes mellitus
     Route: 065

REACTIONS (5)
  - Hunger [Unknown]
  - Blood glucose increased [Unknown]
  - Increased appetite [Unknown]
  - Glycosylated haemoglobin increased [Unknown]
  - Product tampering [Unknown]
